FAERS Safety Report 4777104-7 (Version None)
Quarter: 2005Q3

REPORT INFORMATION
  Report Type: 
  Country: None (occurrence: None)
  Receive Date: 20050915
  Receipt Date: 20050906
  Transmission Date: 20060218
  Serious: Yes (Death)
  Sender: FDA-Public Use
  Company Number: ZICO001261

PATIENT
  Age: 55 Year
  Sex: Female

DRUGS (11)
  1. PRIALT [Suspect]
     Indication: BACK PAIN
     Dosage: 0.1 MCG/HR  INTRATHECAL
     Route: 037
     Dates: start: 20050802
  2. MORPHINE [Suspect]
     Dosage: 69 UG/L
     Dates: start: 20050806
  3. VALORON [Concomitant]
  4. OXYGESIC [Concomitant]
  5. DEMEROL [Concomitant]
  6. ALPRAZOLAM [Concomitant]
  7. PAXIL [Concomitant]
  8. REMERON [Concomitant]
  9. PHENERGAN [Concomitant]
  10. ACCUPRIL [Concomitant]
  11. BUPRENORPHINE [Concomitant]

REACTIONS (2)
  - HAEMORRHAGE [None]
  - OVERDOSE [None]
